FAERS Safety Report 4791300-4 (Version None)
Quarter: 2005Q4

REPORT INFORMATION
  Report Type: 
  Country: None (occurrence: None)
  Receive Date: 20051007
  Receipt Date: 20050930
  Transmission Date: 20060501
  Serious: Yes (Life-Threatening, Hospitalization)
  Sender: FDA-Public Use
  Company Number: 200518709GDDC

PATIENT
  Age: 80 Year
  Sex: Female

DRUGS (3)
  1. AMARYL [Suspect]
     Route: 048
  2. REMINYL [Suspect]
     Route: 048
  3. LESCOL [Concomitant]

REACTIONS (4)
  - DRUG ADMINISTRATION ERROR [None]
  - DRUG DISPENSING ERROR [None]
  - HYPOGLYCAEMIA [None]
  - MEDICATION ERROR [None]
